FAERS Safety Report 12653655 (Version 3)
Quarter: 2016Q3

REPORT INFORMATION
  Report Type: Spontaneous
  Country: CA (occurrence: CA)
  Receive Date: 20160815
  Receipt Date: 20160829
  Transmission Date: 20161109
  Serious: Yes (Other)
  Sender: FDA-Public Use
  Company Number: CA-ROCHE-1813911

PATIENT
  Age: 81 Year
  Sex: Male
  Weight: 80 kg

DRUGS (2)
  1. GAZYVA [Suspect]
     Active Substance: OBINUTUZUMAB
     Indication: PRODUCT USED FOR UNKNOWN INDICATION
     Dosage: AT DAY 1
     Route: 065
  2. CHLORAMBUCIL [Concomitant]
     Active Substance: CHLORAMBUCIL
     Indication: LYMPHOMA
     Route: 048
     Dates: start: 20160803

REACTIONS (2)
  - Syncope [Recovering/Resolving]
  - Infusion related reaction [Recovering/Resolving]

NARRATIVE: CASE EVENT DATE: 20160803
